FAERS Safety Report 8351874-3 (Version None)
Quarter: 2012Q2

REPORT INFORMATION
  Report Type: 
  Country: None (occurrence: None)
  Receive Date: 20120510
  Receipt Date: 20120510
  Transmission Date: 20120825
  Serious: Yes (Other)
  Sender: FDA-Public Use
  Company Number: None

PATIENT
  Age: 64 Year
  Sex: Female
  Weight: 106 kg

DRUGS (5)
  1. IBUPROFEN (ADVIL) [Concomitant]
  2. PREDNISONE TAB [Concomitant]
  3. COMPAZINE [Concomitant]
  4. OFATUMUMAB [Suspect]
     Indication: LYMPHOMA
     Dosage: 1000 MG Q 2 WEEKS IV
     Route: 042
     Dates: start: 20101209
  5. TYLENOL (CAPLET) [Concomitant]

REACTIONS (1)
  - BASAL CELL CARCINOMA [None]
